FAERS Safety Report 7824616-5 (Version None)
Quarter: 2011Q4

REPORT INFORMATION
  Report Type: 
  Country: None (occurrence: None)
  Receive Date: 20111019
  Receipt Date: 20111005
  Transmission Date: 20120403
  Serious: Yes (Hospitalization)
  Sender: FDA-Public Use
  Company Number: US-BAYER-2011-048381

PATIENT
  Age: 48 Year
  Sex: Female
  Weight: 49.433 kg

DRUGS (5)
  1. LOVAZA [Concomitant]
     Dosage: 1 G, QD
     Dates: start: 20080310
  2. DIFFERIN [Concomitant]
     Dosage: 0.1 %, UNK
     Dates: start: 20090416
  3. YAZ [Suspect]
     Indication: ACNE
     Dosage: UNK
     Dates: start: 20080101, end: 20090101
  4. ASPIRIN [Concomitant]
     Dosage: 81 MG, QD
     Dates: start: 20080310
  5. LUNESTA [Concomitant]
     Indication: INSOMNIA
     Dosage: UNK UNK, QD
     Dates: start: 20090326

REACTIONS (2)
  - PAIN [None]
  - PALPITATIONS [None]
